FAERS Safety Report 9228326 (Version 3)
Quarter: 2013Q2

REPORT INFORMATION
  Report Type: Spontaneous
  Country: JP (occurrence: JP)
  Receive Date: 20130412
  Receipt Date: 20130521
  Transmission Date: 20140414
  Serious: Yes (Hospitalization)
  Sender: FDA-Public Use
  Company Number: JP-ROCHE-1211499

PATIENT
  Age: 45 Year
  Sex: Male
  Weight: 74 kg

DRUGS (9)
  1. MIRCERA [Suspect]
     Indication: NEPHROGENIC ANAEMIA
     Route: 058
     Dates: start: 20120401
  2. SODIUM BICARBONATE [Concomitant]
     Indication: RENAL FAILURE CHRONIC
     Route: 048
  3. LIPITOR [Concomitant]
     Indication: HYPERLIPIDAEMIA
     Route: 048
  4. BREDININ [Concomitant]
     Indication: PROPHYLAXIS
     Route: 048
  5. PREDNISOLONE [Concomitant]
     Indication: PROPHYLAXIS
     Route: 048
  6. NEORAL [Concomitant]
     Indication: PROPHYLAXIS
     Route: 048
  7. LASIX [Concomitant]
     Indication: HYPERTENSION
     Route: 048
  8. NORVASC [Concomitant]
     Indication: HYPERTENSION
     Route: 048
  9. ARTIST [Concomitant]
     Indication: HYPERTENSION
     Route: 048

REACTIONS (1)
  - Anaemia [Not Recovered/Not Resolved]
